FAERS Safety Report 5197448-7 (Version None)
Quarter: 2006Q4

REPORT INFORMATION
  Report Type: 
  Country: None (occurrence: None)
  Receive Date: 20060927
  Receipt Date: 20060525
  Transmission Date: 20070319
  Serious: No
  Sender: FDA-Public Use
  Company Number: US-CVT-061150

PATIENT
  Age: 59 Year
  Sex: Male
  Weight: 93.4 kg

DRUGS (17)
  1. RANEXA [Suspect]
     Indication: ANGINA PECTORIS
     Dosage: 500 MG, BID, ORAL
     Route: 048
  2. LIPITOR /01326101/ (ATORVASTATIN) [Concomitant]
  3. MULTI-VITAMIN [Concomitant]
  4. FOLTX (CYANOCOBALAMIN, FOLIC ACID, PYRIDOXINE) [Concomitant]
  5. NORVASC /00972401/ (AMLODIPINE) [Concomitant]
  6. ATENOLOL [Concomitant]
  7. HYZAAR [Concomitant]
  8. COZAAR [Concomitant]
  9. PLAVIX [Concomitant]
  10. AMBIEN [Concomitant]
  11. ASPIRIN [Concomitant]
  12. NITROGLYCERIN (GLYCERYL TRINITRATE) PROLONGED-RELEASE TABLET [Concomitant]
  13. ZOLOFT [Concomitant]
  14. COENZYME Q10 [Concomitant]
  15. POTASSIUM /00031401/ (POTASSIUM) [Concomitant]
  16. MAGNESIUM /00123201/ (MAGNESIUM HYDROXIDE) [Concomitant]
  17. OMEGA-6 FATTY ACIDS (OMEGA-6 FATTY ACIDS) [Concomitant]

REACTIONS (6)
  - DYSPNOEA [None]
  - ERYTHEMA [None]
  - OEDEMA PERIPHERAL [None]
  - PRURITUS [None]
  - TENDERNESS [None]
  - WEIGHT INCREASED [None]
